FAERS Safety Report 5197441-4 (Version None)
Quarter: 2006Q4

REPORT INFORMATION
  Report Type: 
  Country: None (occurrence: None)
  Receive Date: 20060927
  Receipt Date: 20060511
  Transmission Date: 20070319
  Serious: No
  Sender: FDA-Public Use
  Company Number: US-CVT-061019

PATIENT
  Age: 60 Year
  Sex: Male

DRUGS (4)
  1. RANEXA [Suspect]
     Indication: ANGINA PECTORIS
     Dosage: 500 MG, BID, ORAL; 1000 MG, BID, ORAL
     Route: 048
     Dates: start: 20060101
  2. RANEXA [Suspect]
     Indication: ANGINA PECTORIS
     Dosage: 500 MG, BID, ORAL; 1000 MG, BID, ORAL
     Route: 048
     Dates: start: 20060427
  3. RANEXA [Suspect]
     Indication: ANGINA PECTORIS
     Dosage: 500 MG, BID, ORAL; 1000 MG, BID, ORAL
     Route: 048
     Dates: start: 20060511
  4. NITROGLYCERIN [Concomitant]

REACTIONS (2)
  - FEELING HOT [None]
  - FLUSHING [None]
